FAERS Safety Report 9162046 (Version 4)
Quarter: 2013Q2

REPORT INFORMATION
  Report Type: Spontaneous
  Country: RO (occurrence: None)
  Receive Date: 20130222
  Receipt Date: 20130408
  Transmission Date: 20140414
  Serious: Yes (Hospitalization, Other)
  Sender: FDA-Public Use
  Company Number: RO-010935

PATIENT
  Age: 35 Year
  Sex: Female
  Weight: 54 kg

DRUGS (5)
  1. LUTINUS [Suspect]
     Indication: IN VITRO FERTILISATION
     Dosage: ( 300 MG VAGINAL), (100 MG QD VAGINAL)
     Route: 067
     Dates: start: 20121219, end: 20130104
  2. MENOPUR [Suspect]
     Indication: IN VITRO FERTILISATION
     Dates: start: 20121202, end: 20121210
  3. ASPENTER [Concomitant]
  4. FOLIC ACID [Concomitant]
  5. MAGNESIUM W/VITAMIN B NOS [Concomitant]

REACTIONS (18)
  - Hepatocellular injury [None]
  - Ovarian enlargement [None]
  - Ascites [None]
  - Pleural effusion [None]
  - Abdominal pain [None]
  - Dyspnoea [None]
  - Nausea [None]
  - Abdominal distension [None]
  - Oliguria [None]
  - Aspartate aminotransferase increased [None]
  - Alanine aminotransferase increased [None]
  - Ovarian hyperstimulation syndrome [None]
  - Maternal exposure before pregnancy [None]
  - Tachypnoea [None]
  - White blood cell count increased [None]
  - Platelet count increased [None]
  - Protein total decreased [None]
  - Blood sodium decreased [None]
